FAERS Safety Report 9228615 (Version 1)
Quarter: 2013Q2

REPORT INFORMATION
  Report Type: Spontaneous
  Country: US (occurrence: None)
  Receive Date: 20130411
  Receipt Date: 20130411
  Transmission Date: 20140414
  Serious: Yes (Other)
  Sender: FDA-Public Use
  Company Number: None

PATIENT
  Age: 65 Year
  Sex: Female
  Weight: 67.7 kg

DRUGS (1)
  1. HYDROCODON-ACETAMINOPHEN [Suspect]
     Dosage: 1 TO 2 TABLETS, EVERY 4 HOURS,  BY MOUTH
     Route: 048
     Dates: start: 20120322

REACTIONS (6)
  - Abdominal pain [None]
  - Constipation [None]
  - Cystitis [None]
  - Renal failure acute [None]
  - Urinary retention [None]
  - Pain [None]
